FAERS Safety Report 5902759-0 (Version None)
Quarter: 2008Q3

REPORT INFORMATION
  Report Type: 
  Country: None (occurrence: None)
  Receive Date: 20080930
  Receipt Date: 20080922
  Transmission Date: 20090109
  Serious: Yes (Other)
  Sender: FDA-Public Use
  Company Number: AU-JNJFOC-20080905458

PATIENT
  Sex: Male

DRUGS (4)
  1. RISPERDAL CONSTA [Suspect]
     Indication: PSYCHOTIC DISORDER
     Route: 030
  2. RISPERDAL [Suspect]
     Indication: PSYCHOTIC DISORDER
     Route: 048
  3. DIAZEPAM [Concomitant]
     Indication: MENTAL DISORDER
     Route: 065
  4. ZYPREXA [Concomitant]
     Indication: MENTAL DISORDER
     Route: 048

REACTIONS (2)
  - ANAEMIA [None]
  - NEUTROPENIA [None]
